FAERS Safety Report 9842841 (Version 2)
Quarter: 2014Q2

REPORT INFORMATION
  Report Type: Spontaneous
  Country: SE (occurrence: SE)
  Receive Date: 20140124
  Receipt Date: 20140414
  Transmission Date: 20141212
  Serious: Yes (Other)
  Sender: FDA-Public Use
  Company Number: SE-009507513-1401SWE006230

PATIENT
  Age: 71 Year
  Sex: Female

DRUGS (2)
  1. OVESTERIN [Suspect]
     Indication: ATROPHIC VULVOVAGINITIS
     Dosage: TWICE WEEKLY
     Route: 067
     Dates: start: 20110101, end: 20131130
  2. VAGIFEM [Suspect]
     Indication: ATROPHIC VULVOVAGINITIS
     Dosage: TWICE WEEKLY
     Dates: start: 20110101, end: 20131130

REACTIONS (2)
  - Palpitations [Recovered/Resolved]
  - Hallucination, auditory [Recovered/Resolved]
